FAERS Safety Report 24312273 (Version 1)
Quarter: 2024Q3

REPORT INFORMATION
  Report Type: Spontaneous
  Country: US (occurrence: None)
  Receive Date: 20240911
  Receipt Date: 20240911
  Transmission Date: 20241017
  Serious: Yes (Death)
  Sender: Public
  Company Number: None

PATIENT
  Age: 84 Year
  Sex: Female

DRUGS (38)
  1. OPSUMIT [Suspect]
     Active Substance: MACITENTAN
     Indication: Pulmonary arterial hypertension
     Dosage: FREQUENCY : DAILY;?
     Route: 048
     Dates: start: 20220817, end: 20240712
  2. SILDENAFIL [Concomitant]
     Active Substance: SILDENAFIL
  3. TYLENOL [Concomitant]
     Active Substance: ACETAMINOPHEN
  4. ALBUTEROL SULFATE [Concomitant]
     Active Substance: ALBUTEROL SULFATE
  5. albuterol neb inh [Concomitant]
  6. ALPHA LIPOIC ACID [Concomitant]
     Active Substance: .ALPHA.-LIPOIC ACID
  7. VITAMIN C [Concomitant]
     Active Substance: ASCORBIC ACID
  8. ASPIRIN [Concomitant]
     Active Substance: ASPIRIN
  9. BIOTIN [Concomitant]
     Active Substance: BIOTIN
  10. CALCIUM [Concomitant]
     Active Substance: CALCIUM
  11. VITAMIN D3 [Concomitant]
     Active Substance: CHOLECALCIFEROL
  12. CINNAMON [Concomitant]
     Active Substance: CINNAMON
  13. COD LIVER OIL [Concomitant]
     Active Substance: COD LIVER OIL
  14. vit b-12 [Concomitant]
  15. XGEVA [Concomitant]
     Active Substance: DENOSUMAB
  16. DEXAMETHASONE [Concomitant]
     Active Substance: DEXAMETHASONE
  17. DONEPEZIL [Concomitant]
     Active Substance: DONEPEZIL\DONEPEZIL HYDROCHLORIDE
  18. FAMOTIDINE [Concomitant]
     Active Substance: FAMOTIDINE
  19. faxseed [Concomitant]
  20. GABAPENTIN [Concomitant]
     Active Substance: GABAPENTIN
  21. NORCO [Concomitant]
     Active Substance: ACETAMINOPHEN\HYDROCODONE BITARTRATE
  22. POTASSIUM CHLORIDE [Concomitant]
     Active Substance: POTASSIUM CHLORIDE
  23. LORAZEPAM [Concomitant]
     Active Substance: LORAZEPAM
  24. LYSINE [Concomitant]
     Active Substance: LYSINE
  25. MAGNESIUM OXIDE [Concomitant]
     Active Substance: MAGNESIUM OXIDE
  26. magestrol [Concomitant]
  27. MELATONIN [Concomitant]
     Active Substance: MELATONIN
  28. MEMANTINE [Concomitant]
  29. MODAFINIL [Concomitant]
     Active Substance: MODAFINIL
  30. NALTREXONE [Concomitant]
     Active Substance: NALTREXONE
  31. NIACINAMIDE [Concomitant]
     Active Substance: NIACINAMIDE
  32. FISH OIL [Concomitant]
     Active Substance: FISH OIL
  33. OMEPRAZOLE [Concomitant]
     Active Substance: OMEPRAZOLE
  34. ONDANSETRON [Concomitant]
     Active Substance: ONDANSETRON
  35. TORSEMIDE [Concomitant]
     Active Substance: TORSEMIDE
  36. TRAZODONE [Concomitant]
     Active Substance: TRAZODONE HYDROCHLORIDE
  37. HERBALS\TURMERIC [Concomitant]
     Active Substance: HERBALS\TURMERIC
  38. VORTIOXETINE [Concomitant]
     Active Substance: VORTIOXETINE HYDROBROMIDE

REACTIONS (1)
  - Death [None]

NARRATIVE: CASE EVENT DATE: 20240712
